FAERS Safety Report 25334925 (Version 6)
Quarter: 2025Q3

REPORT INFORMATION
  Report Type: Report from Study
  Country: CO (occurrence: CO)
  Receive Date: 20250520
  Receipt Date: 20250916
  Transmission Date: 20251020
  Serious: Yes (Hospitalization, Other)
  Sender: TAKEDA
  Company Number: CO-TAKEDA-2025TUS046829

PATIENT
  Age: 23 Year
  Sex: Female
  Weight: 38 kg

DRUGS (15)
  1. HUMAN IMMUNOGLOBULIN G\HYALURONIDASE RECOMBINANT HUMAN [Suspect]
     Active Substance: HUMAN IMMUNOGLOBULIN G\HYALURONIDASE (HUMAN RECOMBINANT)
     Indication: Primary immunodeficiency syndrome
     Dosage: 20 GRAM, MONTHLY
     Dates: start: 20250307
  2. HUMAN IMMUNOGLOBULIN G\HYALURONIDASE RECOMBINANT HUMAN [Suspect]
     Active Substance: HUMAN IMMUNOGLOBULIN G\HYALURONIDASE (HUMAN RECOMBINANT)
     Dosage: 20 GRAM, MONTHLY
  3. HUMAN IMMUNOGLOBULIN G\HYALURONIDASE RECOMBINANT HUMAN [Suspect]
     Active Substance: HUMAN IMMUNOGLOBULIN G\HYALURONIDASE (HUMAN RECOMBINANT)
     Dosage: 20 GRAM, MONTHLY
  4. HUMAN IMMUNOGLOBULIN G\HYALURONIDASE RECOMBINANT HUMAN [Suspect]
     Active Substance: HUMAN IMMUNOGLOBULIN G\HYALURONIDASE (HUMAN RECOMBINANT)
     Dosage: 20 GRAM, MONTHLY
     Dates: start: 20250702
  5. LACOSAMIDE [Concomitant]
     Active Substance: LACOSAMIDE
     Dosage: 100 MILLIGRAM, Q8HR
  6. LEVETIRACETAM [Concomitant]
     Active Substance: LEVETIRACETAM
     Dosage: 100 MILLIGRAM, Q12H
  7. LEVOTHYROXINE [Concomitant]
     Active Substance: LEVOTHYROXINE
  8. BUDESONIDE [Concomitant]
     Active Substance: BUDESONIDE
  9. ALBUTEROL [Concomitant]
     Active Substance: ALBUTEROL
  10. SULBUTIAMINE [Concomitant]
     Active Substance: SULBUTIAMINE
  11. ESCITALOPRAM [Concomitant]
     Active Substance: ESCITALOPRAM OXALATE
     Dosage: UNK UNK, QD
  12. BACILLUS SUBTILIS [Concomitant]
     Active Substance: BACILLUS SUBTILIS
     Dosage: UNK UNK, QD
  13. Broncho vaxom [Concomitant]
     Dosage: UNK UNK, QD
  14. FOLIC ACID [Concomitant]
     Active Substance: FOLIC ACID
     Dosage: 1 MILLIGRAM, QD
  15. LORATADINE [Concomitant]
     Active Substance: LORATADINE

REACTIONS (30)
  - Loss of consciousness [Recovered/Resolved]
  - Seizure [Recovered/Resolved]
  - Fall [Unknown]
  - Haematoma [Unknown]
  - Bile duct stone [Unknown]
  - Metastatic lymphoma [Unknown]
  - Hyperbilirubinaemia [Unknown]
  - Generalised tonic-clonic seizure [Recovered/Resolved]
  - Ovarian cancer [Unknown]
  - Pneumonia [Unknown]
  - Colitis [Unknown]
  - Bronchiectasis [Unknown]
  - Infusion site pruritus [Recovered/Resolved]
  - Infusion site erythema [Recovered/Resolved]
  - Infusion site warmth [Recovered/Resolved]
  - Blood glucose decreased [Recovered/Resolved]
  - Fasting [Unknown]
  - Hypertransaminasaemia [Unknown]
  - Blood alkaline phosphatase increased [Unknown]
  - Head injury [Unknown]
  - CALR gene mutation [Unknown]
  - Antinuclear antibody positive [Unknown]
  - Gamma-glutamyltransferase increased [Unknown]
  - Anxiety [Unknown]
  - Insomnia [Unknown]
  - Headache [Recovered/Resolved]
  - Fatigue [Unknown]
  - Ear infection [Unknown]
  - Blood pressure decreased [Recovered/Resolved]
  - Diarrhoea [Unknown]

NARRATIVE: CASE EVENT DATE: 20250312
